FAERS Safety Report 5832298-7 (Version None)
Quarter: 2008Q3

REPORT INFORMATION
  Report Type: 
  Country: None (occurrence: None)
  Receive Date: 20080804
  Receipt Date: 20080729
  Transmission Date: 20090109
  Serious: Yes (Hospitalization)
  Sender: FDA-Public Use
  Company Number: A0739892A

PATIENT
  Age: 64 Year
  Sex: Female

DRUGS (8)
  1. CARVEDILOL [Suspect]
     Indication: ARRHYTHMIA
     Dosage: 3.125MG TWICE PER DAY
     Route: 048
     Dates: start: 20070901
  2. COREG [Suspect]
     Indication: ARRHYTHMIA
     Dosage: 3.125MG TWICE PER DAY
     Route: 048
     Dates: start: 20061201, end: 20070901
  3. COREG CR [Suspect]
     Indication: ARRHYTHMIA
     Route: 048
  4. LISINOPRIL [Concomitant]
  5. DIGOXIN [Concomitant]
  6. PREMARIN [Concomitant]
  7. CALCIUM [Concomitant]
  8. VITAMIN TAB [Concomitant]

REACTIONS (6)
  - ALOPECIA [None]
  - CHEST PAIN [None]
  - DIZZINESS [None]
  - HYPOTENSION [None]
  - MEDICATION ERROR [None]
  - TRANCE [None]
